FAERS Safety Report 8154571-2 (Version None)
Quarter: 2012Q1

REPORT INFORMATION
  Report Type: 
  Country: None (occurrence: None)
  Receive Date: 20120221
  Receipt Date: 20111123
  Transmission Date: 20120608
  Serious: Yes (Hospitalization)
  Sender: FDA-Public Use
  Company Number: DE-ROCHE-707694

PATIENT
  Sex: Female
  Weight: 84 kg

DRUGS (14)
  1. ACTEMRA [Suspect]
     Indication: RHEUMATOID ARTHRITIS
     Route: 042
  2. LEFLUNOMIDE [Suspect]
     Indication: RHEUMATOID ARTHRITIS
     Route: 048
  3. RAMIPRIL [Concomitant]
     Indication: HYPERTENSION
     Dosage: 5/25 MG
     Route: 048
  4. REWODINA [Concomitant]
     Route: 048
  5. ACTEMRA [Suspect]
  6. REWODINA [Concomitant]
  7. PREDNIHEXAL [Concomitant]
     Indication: RHEUMATOID ARTHRITIS
  8. RAMIPRIL [Concomitant]
     Dosage: 5/25 MG
  9. ERGOCALCIFEROL [Concomitant]
     Dates: start: 20100701
  10. ACTEMRA [Suspect]
     Dates: start: 20100511, end: 20100721
  11. ACTEMRA [Suspect]
     Dates: start: 20100217, end: 20100608
  12. LEFLUNOMIDE [Suspect]
  13. OMEPRAZOLE [Concomitant]
     Indication: PROPHYLAXIS AGAINST GASTROINTESTINAL ULCER
     Route: 048
  14. ARAVA [Concomitant]
     Route: 048

REACTIONS (11)
  - SKIN NECROSIS [None]
  - FISTULA [None]
  - FALL [None]
  - LOWER LIMB FRACTURE [None]
  - WOUND INFECTION [None]
  - IMPAIRED HEALING [None]
  - ANKLE FRACTURE [None]
  - BONE CYST [None]
  - FIBULA FRACTURE [None]
  - BONE FISTULA [None]
  - KLEBSIELLA INFECTION [None]
